FAERS Safety Report 24541324 (Version 3)
Quarter: 2024Q4

REPORT INFORMATION
  Report Type: Spontaneous
  Country: PK (occurrence: PK)
  Receive Date: 20241023
  Receipt Date: 20241218
  Transmission Date: 20250115
  Serious: Yes (Other)
  Sender: AMGEN
  Company Number: PK-PFIZER INC-PV202300162160

PATIENT
  Age: 15 Year
  Sex: Male
  Weight: 44 kg

DRUGS (19)
  1. ENBREL [Suspect]
     Active Substance: ETANERCEPT
     Indication: Juvenile idiopathic arthritis
     Dosage: 50 MG, WEEKLY
     Route: 058
     Dates: start: 202309
  2. ENBREL [Suspect]
     Active Substance: ETANERCEPT
     Dosage: 50 MG, WEEKLY
     Route: 058
     Dates: start: 20230927
  3. ENBREL [Suspect]
     Active Substance: ETANERCEPT
     Dosage: 50 MG, FORTNIGHTLY
     Route: 058
     Dates: start: 20231001, end: 20231115
  4. ENBREL [Suspect]
     Active Substance: ETANERCEPT
     Dosage: 50 MG, EVERY 2 WEEKS
     Route: 058
     Dates: end: 20240120
  5. ENBREL [Suspect]
     Active Substance: ETANERCEPT
     Dosage: 50 MG, FORTNIGHTLY
     Route: 058
  6. ENBREL [Suspect]
     Active Substance: ETANERCEPT
     Dosage: 50 MG, MONTHLY
     Route: 065
  7. LEFLUNOMIDE [Concomitant]
     Active Substance: LEFLUNOMIDE
     Dosage: 20 MG, DAILY
     Route: 065
  8. SULFASALAZINE [Concomitant]
     Active Substance: SULFASALAZINE
     Dosage: 500 MG, 2X/DAY (1 + 1 IN MORNING AND EVENING)
  9. SOLU-MEDROL [Concomitant]
     Active Substance: METHYLPREDNISOLONE SODIUM SUCCINATE
     Dosage: UNK
  10. PANADOL [Concomitant]
     Active Substance: ACETAMINOPHEN
     Indication: Pain
     Dosage: UNK, 3X/DAY
  11. ACECLOFENAC [Concomitant]
     Active Substance: ACECLOFENAC
     Indication: Pain
     Dosage: 100 MG, 1X/DAY (AFTER LUNCH)
  12. ACECLOFENAC [Concomitant]
     Active Substance: ACECLOFENAC
     Dosage: 100 MG, 1X/DAY (AFTER LUNCH)
  13. HYDROXYCHLOROQUINE SULFATE [Concomitant]
     Active Substance: HYDROXYCHLOROQUINE SULFATE
     Dosage: 200 MG, 1X/DAY (AT NOON)
  14. NILSTAT [Concomitant]
     Active Substance: NYSTATIN
     Dosage: 2 DROPPER ON TONGUE AND LEAVE IT FOR SHORT WHILE THEN SWALLOW 1+1+1 USE FOR 3-5 DAYS
  15. RINVOQ [Concomitant]
     Active Substance: UPADACITINIB
     Dosage: 1 DF, ALTERNATE DAY
  16. Risek [Concomitant]
     Indication: Gastrointestinal disorder
     Dosage: 20 MG, 1X/DAY (BEFORE BREAK FAST) IF TAKING STRONG PAIN KILLER
  17. DELTACORTRIL [Concomitant]
     Active Substance: PREDNISOLONE
     Dosage: 5 MG, 1X/DAY (AFTER BREAKFAST)
  18. DELTACORTRIL [Concomitant]
     Active Substance: PREDNISOLONE
     Dosage: 15 MG, DAILY (DAILY 3 TAB FOR 2 WEEKS, THEN 2 TAB DAILY FOR 1 WEEK THEN 1 TAB ALTERNATE DAYS)
  19. Cal one d [Concomitant]
     Indication: Bone density abnormal
     Dosage: UNK, DAILY

REACTIONS (4)
  - Juvenile idiopathic arthritis [Unknown]
  - Disease recurrence [Unknown]
  - Blood pressure diastolic increased [Unknown]
  - Off label use [Unknown]

NARRATIVE: CASE EVENT DATE: 20240101
